FAERS Safety Report 8415456-7 (Version None)
Quarter: 2012Q2

REPORT INFORMATION
  Report Type: 
  Country: None (occurrence: None)
  Receive Date: 20120530
  Receipt Date: 20120509
  Transmission Date: 20120825
  Serious: Yes (Hospitalization)
  Sender: FDA-Public Use
  Company Number: JPI-P-021052

PATIENT
  Age: 41 Year
  Sex: Male
  Weight: 88.4514 kg

DRUGS (4)
  1. ATENOLOL [Concomitant]
  2. XYREM [Suspect]
     Indication: NARCOLEPSY
     Dosage: 6;13 GM (3;6.5 GM, 2 IN 1 D), ORAL
     Route: 048
     Dates: start: 20110408
  3. XYREM [Suspect]
     Indication: NARCOLEPSY
     Dosage: 6;13 GM (3;6.5 GM, 2 IN 1 D), ORAL
     Route: 048
     Dates: start: 20051118
  4. ALPRAZOLAM [Concomitant]

REACTIONS (2)
  - PERFORATED ULCER [None]
  - ABDOMINAL DISCOMFORT [None]
